FAERS Safety Report 7587929-0 (Version None)
Quarter: 2011Q3

REPORT INFORMATION
  Report Type: 
  Country: None (occurrence: None)
  Receive Date: 20110705
  Receipt Date: 20110627
  Transmission Date: 20111222
  Serious: Yes (Other)
  Sender: FDA-Public Use
  Company Number: DE-AMGEN-DEUSP2011022831

PATIENT
  Age: 74 Year
  Sex: Male

DRUGS (3)
  1. ENBREL [Suspect]
     Indication: PRODUCT USED FOR UNKNOWN INDICATION
     Dosage: 50 MG, UNK
     Dates: start: 20080101
  2. ENBREL [Suspect]
     Dosage: UNK
     Dates: start: 20110101
  3. EBASTINE [Concomitant]
     Indication: SEASONAL ALLERGY
     Dosage: UNK

REACTIONS (2)
  - ARTHRITIS [None]
  - BRONCHITIS [None]
